FAERS Safety Report 19181321 (Version 2)
Quarter: 2021Q2

REPORT INFORMATION
  Report Type: Report from Study
  Country: US (occurrence: US)
  Receive Date: 20210426
  Receipt Date: 20210426
  Transmission Date: 20210717
  Serious: Yes (Other)
  Sender: FDA-Public Use
  Company Number: US-BIOGEN-2021BI01002382

PATIENT
  Sex: Female

DRUGS (4)
  1. OXYGEN. [Concomitant]
     Active Substance: OXYGEN
     Indication: PRODUCT USED FOR UNKNOWN INDICATION
     Route: 065
  2. GELSYN [Concomitant]
     Indication: OSTEOPOROSIS
     Route: 065
  3. VUMERITY [Suspect]
     Active Substance: DIROXIMEL FUMARATE
     Indication: MULTIPLE SCLEROSIS
     Route: 065
     Dates: start: 20210407
  4. TECFIDERA [Suspect]
     Active Substance: DIMETHYL FUMARATE
     Indication: MULTIPLE SCLEROSIS
     Route: 065
     Dates: start: 20170216

REACTIONS (7)
  - Fall [Recovered/Resolved]
  - Multiple sclerosis [Unknown]
  - Balance disorder [Unknown]
  - Femur fracture [Unknown]
  - Pelvic fracture [Unknown]
  - Wrist fracture [Unknown]
  - Upper limb fracture [Unknown]
